FAERS Safety Report 10202770 (Version 1)
Quarter: 2014Q2

REPORT INFORMATION
  Report Type: Spontaneous
  Country: ES (occurrence: ES)
  Receive Date: 20140528
  Receipt Date: 20140528
  Transmission Date: 20141212
  Serious: Yes (Hospitalization)
  Sender: FDA-Public Use
  Company Number: ES-WATSON-2014-11357

PATIENT
  Age: 32 Year
  Sex: Male

DRUGS (7)
  1. METAMIZOLE SODIUM (UNKNOWN) [Suspect]
     Indication: POSTOPERATIVE CARE
     Dosage: UNK
     Route: 048
  2. METOCLOPRAMIDE (UNKNOWN) [Suspect]
     Indication: POSTOPERATIVE CARE
     Dosage: UNKNOWN
     Route: 065
  3. OXAZEPAM (UNKNOWN) [Suspect]
     Indication: POSTOPERATIVE CARE
     Dosage: UNKNOWN
     Route: 065
  4. IBUPROFEN (UNKNOWN) [Suspect]
     Indication: POSTOPERATIVE CARE
     Dosage: UNKNOWN
     Route: 065
  5. DIMETHICONE [Suspect]
     Indication: POSTOPERATIVE CARE
     Dosage: UNKNOWN
     Route: 065
  6. PLANTAGO OVATA [Suspect]
     Indication: POSTOPERATIVE CARE
     Dosage: UNKNOWN
     Route: 065
  7. ACETAMINOPHEN [Concomitant]
     Indication: POSTOPERATIVE CARE
     Dosage: UNKNOWN
     Route: 065

REACTIONS (13)
  - Drug reaction with eosinophilia and systemic symptoms [Recovered/Resolved]
  - Hepatic failure [None]
  - Renal impairment [None]
  - Blood urea increased [None]
  - Blood creatinine increased [None]
  - Pericardial effusion [None]
  - Pleural effusion [None]
  - Arthralgia [None]
  - Myalgia [None]
  - Pyrexia [None]
  - Choluria [None]
  - Abdominal pain [None]
  - Rash erythematous [None]
